FAERS Safety Report 4462036-4 (Version None)
Quarter: 2004Q3

REPORT INFORMATION
  Report Type: 
  Country: None (occurrence: None)
  Receive Date: 20040929
  Receipt Date: 20040909
  Transmission Date: 20050211
  Serious: Yes (Life-Threatening, Hospitalization)
  Sender: FDA-Public Use
  Company Number: US-AMGEN-US090378

PATIENT
  Sex: Female
  Weight: 111.2 kg

DRUGS (2)
  1. ENBREL [Suspect]
     Indication: RHEUMATOID ARTHRITIS
     Route: 058
     Dates: start: 20040105, end: 20040823
  2. METHOTREXATE [Concomitant]
     Dates: start: 20040721, end: 20040805

REACTIONS (1)
  - BRAIN NEOPLASM [None]
